FAERS Safety Report 11687680 (Version 3)
Quarter: 2016Q3

REPORT INFORMATION
  Report Type: Spontaneous
  Country: US (occurrence: US)
  Receive Date: 20151030
  Receipt Date: 20160920
  Transmission Date: 20161109
  Serious: Yes (Other)
  Sender: FDA-Public Use
  Company Number: US-PFIZER INC-2015368738

PATIENT
  Age: 45 Year
  Sex: Female
  Weight: 73 kg

DRUGS (7)
  1. ATORVASTATIN CALCIUM. [Suspect]
     Active Substance: ATORVASTATIN CALCIUM
     Dosage: 40 MG, 1X/DAY AT NIGHT
     Dates: start: 201311
  2. PRAVASTATIN. [Suspect]
     Active Substance: PRAVASTATIN
     Dosage: UNK
  3. LIPITOR [Concomitant]
     Active Substance: ATORVASTATIN CALCIUM
     Dosage: 10 MG, UNK
  4. ATORVASTATIN CALCIUM. [Suspect]
     Active Substance: ATORVASTATIN CALCIUM
     Dosage: 10 MG, UNK
  5. CRESTOR [Suspect]
     Active Substance: ROSUVASTATIN CALCIUM
     Dosage: 10 MG, UNK
     Dates: start: 20131121
  6. PRAVASTATIN SODIUM. [Suspect]
     Active Substance: PRAVASTATIN SODIUM
     Indication: BLOOD CHOLESTEROL INCREASED
     Dosage: 20 MG, UNK
  7. PRAVASTATIN SODIUM. [Suspect]
     Active Substance: PRAVASTATIN SODIUM
     Indication: BLOOD TRIGLYCERIDES INCREASED
     Dosage: 40 MG, UNK
     Dates: start: 20151004

REACTIONS (19)
  - Pain in extremity [Unknown]
  - Laceration [Unknown]
  - Fall [Unknown]
  - Erythema [Unknown]
  - Hepatic enzyme increased [Unknown]
  - Rib fracture [Unknown]
  - Abdominal distension [Unknown]
  - Drug ineffective [Unknown]
  - Weight increased [Unknown]
  - Pain [Unknown]
  - Accident [Unknown]
  - Musculoskeletal stiffness [Unknown]
  - Coagulopathy [Unknown]
  - Muscle spasms [Unknown]
  - Paraesthesia [Unknown]
  - Dry mouth [Unknown]
  - Loss of control of legs [Unknown]
  - Skin discolouration [Unknown]
  - Arthralgia [Unknown]

NARRATIVE: CASE EVENT DATE: 201311
